FAERS Safety Report 9733477 (Version 3)
Quarter: 2014Q2

REPORT INFORMATION
  Report Type: Report from Study
  Country: BR (occurrence: BR)
  Receive Date: 20131205
  Receipt Date: 20140502
  Transmission Date: 20141212
  Serious: Yes (Hospitalization, Disabling)
  Sender: FDA-Public Use
  Company Number: BR-ROCHE-1310945

PATIENT
  Sex: Male
  Weight: 73 kg

DRUGS (6)
  1. ACTEMRA [Suspect]
     Indication: RHEUMATOID ARTHRITIS
     Dosage: MOST RECENT DOSE WAS RECEIVED ON 21/MAR/2014.
     Route: 042
     Dates: start: 2009
  2. ACTEMRA [Suspect]
     Route: 042
     Dates: start: 20131031
  3. LOSARTAN [Concomitant]
  4. FOLIC ACID [Concomitant]
  5. METHOTREXATE [Concomitant]
  6. SIMVASTATIN [Concomitant]

REACTIONS (2)
  - Ligament rupture [Not Recovered/Not Resolved]
  - Weight increased [Recovered/Resolved]
